FAERS Safety Report 22016948 (Version 3)
Quarter: 2023Q2

REPORT INFORMATION
  Report Type: Spontaneous
  Country: JP (occurrence: JP)
  Receive Date: 20230221
  Receipt Date: 20230616
  Transmission Date: 20230722
  Serious: Yes (Death, Other)
  Sender: FDA-Public Use
  Company Number: JP-OTSUKA-2023_004477

PATIENT
  Age: 3 Year

DRUGS (5)
  1. BUSULFEX [Suspect]
     Active Substance: BUSULFAN
     Indication: Unrelated donor bone marrow transplantation therapy
     Dosage: AUC 60 MG X HR/L, UNK
     Route: 065
  2. ALEMTUZUMAB [Suspect]
     Active Substance: ALEMTUZUMAB
     Indication: Unrelated donor bone marrow transplantation therapy
     Dosage: 0.16 MG/KG/DAY
     Route: 065
  3. FLUDARABINE PHOSPHATE [Suspect]
     Active Substance: FLUDARABINE PHOSPHATE
     Indication: Unrelated donor bone marrow transplantation therapy
     Dosage: 30 MG/M2/DAY
     Route: 065
  4. TACROLIMUS [Suspect]
     Active Substance: TACROLIMUS
     Indication: Prophylaxis against graft versus host disease
     Dosage: UNK
     Route: 065
  5. METHOTREXATE [Suspect]
     Active Substance: METHOTREXATE
     Indication: Prophylaxis against graft versus host disease
     Dosage: SHORT-TERM, UNK
     Route: 065

REACTIONS (9)
  - Disseminated intravascular coagulation [Not Recovered/Not Resolved]
  - Haemophagocytic lymphohistiocytosis [Unknown]
  - Cytokine storm [Unknown]
  - Endothelial dysfunction [Unknown]
  - Pulmonary haemorrhage [Fatal]
  - Multiple organ dysfunction syndrome [Unknown]
  - Adenovirus infection [Unknown]
  - Thrombotic microangiopathy [Unknown]
  - Venoocclusive liver disease [Not Recovered/Not Resolved]
